FAERS Safety Report 10457058 (Version 4)
Quarter: 2015Q1

REPORT INFORMATION
  Report Type: Spontaneous
  Country: AU (occurrence: AU)
  Receive Date: 20140916
  Receipt Date: 20150128
  Transmission Date: 20150720
  Serious: Yes (Death, Hospitalization)
  Sender: FDA-Public Use
  Company Number: AU-ACTELION-A-CH2014-104985

PATIENT
  Age: 64 Year
  Sex: Female
  Weight: 39.5 kg

DRUGS (2)
  1. TRACLEER [Suspect]
     Active Substance: BOSENTAN\BOSENTAN MONOHYDRATE
     Indication: PULMONARY ARTERIAL HYPERTENSION
     Dosage: 62.5 MG, BID
     Route: 048
     Dates: start: 20140910, end: 20141216
  2. OPSUMIT [Suspect]
     Active Substance: MACITENTAN
     Indication: PULMONARY ARTERIAL HYPERTENSION
     Dosage: 10 MG, OD
     Route: 048
     Dates: start: 20140814, end: 20140831

REACTIONS (12)
  - Concomitant disease aggravated [Fatal]
  - Throat irritation [Not Recovered/Not Resolved]
  - Interstitial lung disease [Fatal]
  - Pneumonia pseudomonal [Not Recovered/Not Resolved]
  - Malaise [Not Recovered/Not Resolved]
  - Superinfection bacterial [Not Recovered/Not Resolved]
  - Dyspnoea [Fatal]
  - Dyspnoea exertional [Fatal]
  - Cough [Fatal]
  - Productive cough [Not Recovered/Not Resolved]
  - Viral infection [Not Recovered/Not Resolved]
  - Sepsis [Not Recovered/Not Resolved]

NARRATIVE: CASE EVENT DATE: 20140903
